FAERS Safety Report 8847181 (Version 2)
Quarter: 2012Q4

REPORT INFORMATION
  Report Type: 
  Country: US (occurrence: US)
  Receive Date: 20121018
  Receipt Date: 20121024
  Transmission Date: 20130627
  Serious: Yes (Hospitalization)
  Sender: FDA-Public Use
  Company Number: US-ACTELION-A-US2012-72922

PATIENT
  Age: 54 Year
  Sex: Female

DRUGS (1)
  1. VENTAVIS [Suspect]
     Indication: PULMONARY ARTERIAL HYPERTENSION
     Dosage: UNK
     Route: 055

REACTIONS (6)
  - Cerebrovascular accident [Unknown]
  - Blood glucose increased [Unknown]
  - Hypertension [Unknown]
  - Diabetes mellitus [Unknown]
  - Blood potassium increased [Unknown]
  - Cough [Unknown]
